FAERS Safety Report 23395969 (Version 2)
Quarter: 2025Q3

REPORT INFORMATION
  Report Type: Spontaneous
  Country: CA (occurrence: CA)
  Receive Date: 20240112
  Receipt Date: 20250730
  Transmission Date: 20251020
  Serious: Yes (Hospitalization, Other)
  Sender: Haleon PLC
  Company Number: CA-SANDOZ-SDZ2024CA002402

PATIENT
  Sex: Male

DRUGS (11)
  1. DICLOFENAC DIETHYLAMINE [Suspect]
     Active Substance: DICLOFENAC DIETHYLAMINE
     Indication: Product used for unknown indication
  2. PANTOPRAZOLE MAGNESIUM [Concomitant]
     Active Substance: PANTOPRAZOLE MAGNESIUM
     Indication: Product used for unknown indication
  3. DICLOFENAC [Suspect]
     Active Substance: DICLOFENAC
     Indication: Product used for unknown indication
  4. RISEDRONATE SODIUM [Concomitant]
     Active Substance: RISEDRONATE SODIUM
     Indication: Product used for unknown indication
  5. RISEDRONATE SODIUM [Concomitant]
     Active Substance: RISEDRONATE SODIUM
  6. SULFASALAZINE [Concomitant]
     Active Substance: SULFASALAZINE
     Indication: Product used for unknown indication
  7. METHOTREXATE [Suspect]
     Active Substance: METHOTREXATE
     Indication: Product used for unknown indication
  8. HYDROXYCHLOROQUINE [Concomitant]
     Active Substance: HYDROXYCHLOROQUINE
     Indication: Product used for unknown indication
  9. PREDNISONE [Concomitant]
     Active Substance: PREDNISONE
     Indication: Product used for unknown indication
  10. HUMIRA [Concomitant]
     Active Substance: ADALIMUMAB
     Indication: Product used for unknown indication
     Route: 058
  11. PLAQUENIL [Concomitant]
     Active Substance: HYDROXYCHLOROQUINE SULFATE
     Indication: Product used for unknown indication

REACTIONS (10)
  - Affective disorder [Unknown]
  - Pain [Unknown]
  - Fall [Unknown]
  - Asthenia [Unknown]
  - Quality of life decreased [Unknown]
  - Gait disturbance [Unknown]
  - Balance disorder [Unknown]
  - Grip strength decreased [Unknown]
  - Joint injury [Unknown]
  - Dysstasia [Unknown]
